FAERS Safety Report 17576854 (Version 1)
Quarter: 2020Q1

REPORT INFORMATION
  Report Type: Spontaneous
  Country: US (occurrence: US)
  Receive Date: 20200319
  Receipt Date: 20200319
  Transmission Date: 20200409
  Serious: Yes (Hospitalization)
  Sender: FDA-Public Use
  Company Number: None

PATIENT
  Sex: Female

DRUGS (1)
  1. OMEPRAZOLE DR 20MG AUROBINDO PHARMA [Suspect]
     Active Substance: OMEPRAZOLE
     Route: 048
     Dates: start: 2015

REACTIONS (4)
  - Chills [None]
  - Nausea [None]
  - Vomiting [None]
  - Pyrexia [None]
